FAERS Safety Report 9325752 (Version 2)
Quarter: 2013Q2

REPORT INFORMATION
  Report Type: Report from Study
  Country: DE (occurrence: DE)
  Receive Date: 20130604
  Receipt Date: 20130617
  Transmission Date: 20140414
  Serious: Yes (Life-Threatening)
  Sender: FDA-Public Use
  Company Number: DE-ASTELLAS-2013EU004668

PATIENT
  Sex: Male
  Weight: 81 kg

DRUGS (1)
  1. TACROLIMUS SYSTEMIC [Suspect]
     Dosage: UNK NG/ML, UID/QD
     Route: 050
     Dates: start: 20120421, end: 20120421

REACTIONS (1)
  - Procedural haemorrhage [Recovered/Resolved]
